FAERS Safety Report 13112488 (Version 1)
Quarter: 2017Q1

REPORT INFORMATION
  Report Type: Spontaneous
  Country: US (occurrence: US)
  Receive Date: 20170112
  Receipt Date: 20170112
  Transmission Date: 20170428
  Serious: Yes (Hospitalization)
  Sender: FDA-Public Use
  Company Number: None

PATIENT
  Age: 65 Year
  Sex: Female
  Weight: 87 kg

DRUGS (7)
  1. DRONEDARONE HCL [Concomitant]
  2. FUROSEMIDE. [Concomitant]
     Active Substance: FUROSEMIDE
  3. SIMVASTATIN. [Concomitant]
     Active Substance: SIMVASTATIN
  4. ESCITALOPRAM [Concomitant]
     Active Substance: ESCITALOPRAM OXALATE
  5. LISINOPRIL. [Concomitant]
     Active Substance: LISINOPRIL
  6. DABIGATRAN ETEXILATE MESYLATE [Suspect]
     Active Substance: DABIGATRAN ETEXILATE MESYLATE
     Indication: ATRIAL FIBRILLATION
     Route: 048
     Dates: start: 20160116, end: 20160428
  7. METOPROLOL SUCCINATE SR [Concomitant]
     Active Substance: METOPROLOL SUCCINATE

REACTIONS (6)
  - Anaemia [None]
  - Haemorrhage [None]
  - Coagulopathy [None]
  - Gastritis erosive [None]
  - Refusal of treatment by patient [None]
  - Melaena [None]

NARRATIVE: CASE EVENT DATE: 20160328
